FAERS Safety Report 18116758 (Version 1)
Quarter: 2020Q3

REPORT INFORMATION
  Report Type: Spontaneous
  Country: US (occurrence: US)
  Receive Date: 20200806
  Receipt Date: 20200806
  Transmission Date: 20201103
  Serious: Yes (Other)
  Sender: FDA-Public Use
  Company Number: US-STRIDES ARCOLAB LIMITED-2020SP008276

PATIENT
  Sex: Male

DRUGS (19)
  1. OXCARBAZEPINE. [Suspect]
     Active Substance: OXCARBAZEPINE
     Dosage: 300 MILLIGRAM, BID
     Route: 065
  2. METHYLPREDNISOLONE. [Suspect]
     Active Substance: METHYLPREDNISOLONE
     Indication: PAIN
     Dosage: 1 GRAM, UNK
     Route: 065
  3. LIDOPROFEN [Suspect]
     Active Substance: KETAMINE\KETOPROFEN\LIDOCAINE
     Indication: PROCEDURAL PAIN
     Dosage: UNK
     Route: 061
  4. MAGNESIUM [Suspect]
     Active Substance: MAGNESIUM
     Indication: PAIN
     Dosage: 2 GRAM, UNK
     Route: 065
  5. GABAPENTIN. [Suspect]
     Active Substance: GABAPENTIN
     Indication: PROCEDURAL PAIN
     Dosage: 600 MILLIGRAM, TID (FOR MORE THAN ONE MONTH)
     Route: 065
  6. LEVETIRACETAM. [Suspect]
     Active Substance: LEVETIRACETAM
     Indication: PROCEDURAL PAIN
     Dosage: 500 MILLIGRAM, TID (ALSO RESULTED IN UNSPECIFIED SIDE EFFECTS)
     Route: 065
  7. METHOCARBAMOL. [Suspect]
     Active Substance: METHOCARBAMOL
     Indication: PROCEDURAL PAIN
     Dosage: 500 MILLIGRAM, TID (AS NEEDED)
     Route: 065
  8. NUBAIN [Suspect]
     Active Substance: NALBUPHINE HYDROCHLORIDE
     Indication: PROCEDURAL PAIN
     Dosage: UNK, ONCE ONLY
     Route: 065
  9. ONDANSETRON [Suspect]
     Active Substance: ONDANSETRON
     Indication: NAUSEA
     Dosage: 4 MILLIGRAM, UNK
     Route: 065
  10. DIPHENHYDRAMINE. [Suspect]
     Active Substance: DIPHENHYDRAMINE
     Indication: PAIN
     Dosage: 12.5 MILLIGRAM, UNK
     Route: 065
  11. INDOMETHACIN [INDOMETACIN] [Suspect]
     Active Substance: INDOMETHACIN
     Indication: PROCEDURAL PAIN
     Dosage: 25 MILLIGRAM, TID
     Route: 065
  12. ONDANSETRON [Suspect]
     Active Substance: ONDANSETRON
     Indication: PAIN
  13. OXCARBAZEPINE. [Suspect]
     Active Substance: OXCARBAZEPINE
     Indication: PROCEDURAL PAIN
     Dosage: 150 MILLIGRAM, BID
     Route: 065
  14. TRAMADOL. [Suspect]
     Active Substance: TRAMADOL
     Indication: PAIN
     Dosage: 50 MILLIGRAM, UNK
     Route: 065
  15. PREDNISOLONE. [Suspect]
     Active Substance: PREDNISOLONE
     Indication: PROCEDURAL PAIN
     Dosage: 60 MILLIGRAM DAILY
     Route: 065
  16. PREGABALIN. [Suspect]
     Active Substance: PREGABALIN
     Indication: PROCEDURAL PAIN
     Dosage: 100 MILLIGRAM DAILY
     Route: 065
  17. PARACETAMOL [Suspect]
     Active Substance: ACETAMINOPHEN
     Indication: PAIN
     Dosage: 650 MILLIGRAM, EVERY 6 HRS
     Route: 065
  18. MORPHINE [Suspect]
     Active Substance: MORPHINE
     Indication: PAIN
     Dosage: 4 MILLIGRAM, UNK
     Route: 065
  19. CYCLOBENZAPRINE. [Suspect]
     Active Substance: CYCLOBENZAPRINE
     Indication: PAIN
     Dosage: 10 MILLIGRAM, UNK
     Route: 065

REACTIONS (2)
  - Drug ineffective [Unknown]
  - Off label use [Unknown]
